FAERS Safety Report 23529783 (Version 2)
Quarter: 2024Q2

REPORT INFORMATION
  Report Type: Spontaneous
  Country: JP (occurrence: JP)
  Receive Date: 20240216
  Receipt Date: 20240607
  Transmission Date: 20240716
  Serious: Yes (Other)
  Sender: FDA-Public Use
  Company Number: JP-SA-2024SA045880

PATIENT
  Age: 40 Year
  Sex: Male

DRUGS (4)
  1. CABLIVI [Suspect]
     Active Substance: CAPLACIZUMAB-YHDP
     Indication: Thrombotic thrombocytopenic purpura
     Dosage: DAILY DOSE: 10 MG, QD
     Route: 065
     Dates: start: 20230531, end: 20230703
  2. CABLIVI [Suspect]
     Active Substance: CAPLACIZUMAB-YHDP
     Indication: Thrombotic thrombocytopenic purpura
     Dosage: DAILY DOSE: 10 MG, QD
     Route: 065
     Dates: start: 20230531, end: 20230703
  3. CABLIVI [Suspect]
     Active Substance: CAPLACIZUMAB-YHDP
     Indication: Thrombotic thrombocytopenic purpura
     Dosage: DAILY DOSE: 10 MG, QD
     Route: 065
     Dates: start: 20230531, end: 20230703
  4. CABLIVI [Suspect]
     Active Substance: CAPLACIZUMAB-YHDP
     Indication: Thrombotic thrombocytopenic purpura
     Dosage: DAILY DOSE: 10 MG, QD
     Route: 065
     Dates: start: 20230531, end: 20230703

REACTIONS (2)
  - Anaphylactic shock [Recovered/Resolved]
  - Epistaxis [Recovered/Resolved]

NARRATIVE: CASE EVENT DATE: 20230101
